FAERS Safety Report 13062573 (Version 1)
Quarter: 2016Q4

REPORT INFORMATION
  Report Type: Report from Study
  Country: IL (occurrence: IL)
  Receive Date: 20161226
  Receipt Date: 20161226
  Transmission Date: 20170207
  Serious: Yes (Hospitalization, Other)
  Sender: FDA-Public Use
  Company Number: IL-TAKEDA-2016TUS023106

PATIENT
  Age: 60 Year
  Sex: Female

DRUGS (2)
  1. CURCUMIN [Concomitant]
     Active Substance: CURCUMIN
     Dosage: UNK
  2. VEDOLIZUMAB [Suspect]
     Active Substance: VEDOLIZUMAB
     Indication: CROHN^S DISEASE
     Dosage: 300 MG, UNK
     Route: 042
     Dates: start: 20160628

REACTIONS (2)
  - Crohn^s disease [Recovered/Resolved]
  - Intestinal obstruction [Recovered/Resolved]
